FAERS Safety Report 15658653 (Version 1)
Quarter: 2018Q4

REPORT INFORMATION
  Report Type: Spontaneous
  Country: US (occurrence: US)
  Receive Date: 20181126
  Receipt Date: 20181126
  Transmission Date: 20190205
  Serious: Yes (Death)
  Sender: FDA-Public Use
  Company Number: US-FRESENIUS KABI-FK201812032

PATIENT
  Age: 2 Year
  Sex: Female

DRUGS (12)
  1. DEXAMETHASONE INJECTION (MANUFACTURER UNKNOWN) [Suspect]
     Active Substance: DEXAMETHASONE
     Indication: EPSTEIN-BARR VIRUS ASSOCIATED LYMPHOMA
     Route: 065
  2. IFOSFAMIDE (MANUFACTURER UNKNOWN) [Suspect]
     Active Substance: IFOSFAMIDE
     Indication: EPSTEIN-BARR VIRUS ASSOCIATED LYMPHOMA
     Dosage: UNKNOWN
     Route: 065
  3. VINCRISTINE (MANUFACTURER UNKNOWN) [Suspect]
     Active Substance: VINCRISTINE
     Indication: EPSTEIN-BARR VIRUS ASSOCIATED LYMPHOMA
     Dosage: UNKNOWN
     Route: 065
  4. CYTARABINE (MANUFACTURER UNKNOWN) [Suspect]
     Active Substance: CYTARABINE
     Indication: EPSTEIN-BARR VIRUS ASSOCIATED LYMPHOMA
     Dosage: UNKNOWN
     Route: 065
  5. ETOPOSIDE (MANUFACTURER UNKNOWN) [Suspect]
     Active Substance: ETOPOSIDE
     Indication: EPSTEIN-BARR VIRUS ASSOCIATED LYMPHOMA
     Dosage: UNKNOWN
     Route: 065
  6. RITUXIMAB. [Suspect]
     Active Substance: RITUXIMAB
     Indication: EPSTEIN-BARR VIRUS ASSOCIATED LYMPHOMA
  7. METHOTREXATE (MANUFACTURER UNKNOWN) [Suspect]
     Active Substance: METHOTREXATE
     Indication: EPSTEIN-BARR VIRUS ASSOCIATED LYMPHOMA
     Dosage: UNKNOWN
     Route: 065
  8. CYCLOPHOSPHAMIDE (MANUFACTURER UNKNOWN) [Suspect]
     Active Substance: CYCLOPHOSPHAMIDE
     Indication: EPSTEIN-BARR VIRUS ASSOCIATED LYMPHOMA
     Dosage: UNKNOWN
     Route: 065
  9. CARBOPLATIN (MANUFACTURER UNKNOWN) [Suspect]
     Active Substance: CARBOPLATIN
     Indication: EPSTEIN-BARR VIRUS ASSOCIATED LYMPHOMA
     Dosage: UNKNOWN
     Route: 065
  10. PREDNISONE ACETATE [Suspect]
     Active Substance: PREDNISONE ACETATE
     Indication: EPSTEIN-BARR VIRUS ASSOCIATED LYMPHOMA
  11. DOXORUBICIN (MANUFACTURER UNKNOWN) [Suspect]
     Active Substance: DOXORUBICIN
     Indication: EPSTEIN-BARR VIRUS ASSOCIATED LYMPHOMA
     Dosage: UNKNOWN
     Route: 065
  12. HYDROCORTISONE SODIUM SUCCINATE [Suspect]
     Active Substance: HYDROCORTISONE SODIUM SUCCINATE
     Indication: EPSTEIN-BARR VIRUS ASSOCIATED LYMPHOMA

REACTIONS (5)
  - Condition aggravated [Fatal]
  - Epstein-Barr virus associated lymphoma [Fatal]
  - Adenovirus infection [Fatal]
  - Cytomegalovirus viraemia [Fatal]
  - Angiocentric lymphoma [Fatal]
